FAERS Safety Report 4470838-3 (Version None)
Quarter: 2004Q4

REPORT INFORMATION
  Report Type: 
  Country: None (occurrence: None)
  Receive Date: 20041011
  Receipt Date: 20040817
  Transmission Date: 20050328
  Serious: Yes (Hospitalization)
  Sender: FDA-Public Use
  Company Number: CA-BRISTOL-MYERS SQUIBB COMPANY-12686671

PATIENT
  Age: 84 Year
  Sex: Female

DRUGS (15)
  1. GATIFLOXACIN [Suspect]
     Indication: COUGH
  2. GLYBURIDE [Suspect]
     Indication: DIABETES MELLITUS NON-INSULIN-DEPENDENT
     Dosage: THERAPY WAS INTERRUPTED DUE TO THE EVENT.
     Route: 048
  3. METFORMIN HCL [Concomitant]
  4. WARFARIN SODIUM [Concomitant]
  5. RAMIPRIL [Concomitant]
  6. LEVOTHYROXINE SODIUM [Concomitant]
  7. ATORVASTATIN CALCIUM [Concomitant]
  8. OMEPRAZOLE [Concomitant]
  9. ALENDRONATE SODIUM [Concomitant]
  10. CALCIUM [Concomitant]
  11. VITAMIN D [Concomitant]
  12. FLUTICASONE PROPIONATE [Concomitant]
     Route: 055
  13. MIACALCIN [Concomitant]
  14. IRON SULFATETHIAMIN COMPOUND TAB [Concomitant]
  15. ACETAMINOPHEN [Concomitant]
     Indication: PAIN

REACTIONS (1)
  - HYPOGLYCAEMIA [None]
